FAERS Safety Report 14385439 (Version 3)
Quarter: 2018Q2

REPORT INFORMATION
  Report Type: Spontaneous
  Country: US (occurrence: US)
  Receive Date: 20180115
  Receipt Date: 20180619
  Transmission Date: 20180711
  Serious: Yes (Other)
  Sender: FDA-Public Use
  Company Number: US-SA-2016SA232889

PATIENT
  Age: 42 Year
  Sex: Female
  Weight: 97 kg

DRUGS (10)
  1. AVANZA [Concomitant]
     Active Substance: MIRTAZAPINE
     Indication: HYPERTENSION
     Dosage: UNK UNK,UNK
     Route: 065
     Dates: start: 200401
  2. LANTUS [Concomitant]
     Active Substance: INSULIN GLARGINE
     Indication: BREAST CANCER
     Dosage: UNK UNK,UNK
     Route: 065
     Dates: start: 200401
  3. NEOSAR [Concomitant]
     Active Substance: CYCLOPHOSPHAMIDE
  4. TAXOTERE [Suspect]
     Active Substance: DOCETAXEL
     Indication: BREAST CANCER FEMALE
     Dosage: UNK UNK,Q3W
     Route: 042
     Dates: start: 20070131, end: 20070131
  5. ADRIAMYCIN [DOXORUBICIN] [Concomitant]
     Dosage: UNK UNK, QCY
  6. DOXIL [DOXYCYCLINE HYDROCHLORIDE] [Concomitant]
  7. CYTOXAN [Concomitant]
     Active Substance: CYCLOPHOSPHAMIDE
     Dosage: UNK
  8. TAXOTERE [Suspect]
     Active Substance: DOCETAXEL
     Dosage: UNK UNK,Q3W
     Route: 042
     Dates: start: 20070313, end: 20070313
  9. CYTOXAN [Concomitant]
     Active Substance: CYCLOPHOSPHAMIDE
     Dosage: UNK
  10. ADRIAMYCIN [DOXORUBICIN] [Concomitant]
     Dosage: UNK UNK, QCY

REACTIONS (6)
  - Pain [Unknown]
  - Alopecia [Recovering/Resolving]
  - Impaired quality of life [Unknown]
  - Emotional distress [Unknown]
  - Anxiety [Unknown]
  - Psychological trauma [Unknown]

NARRATIVE: CASE EVENT DATE: 200709
